FAERS Safety Report 8850814 (Version 1)
Quarter: 2012Q4

REPORT INFORMATION
  Report Type: 
  Country: AT (occurrence: AT)
  Receive Date: 20121019
  Receipt Date: 20121019
  Transmission Date: 20130627
  Serious: Yes (Other)
  Sender: FDA-Public Use
  Company Number: AT-BAYER-2012-108963

PATIENT
  Age: 58 Year
  Sex: Female

DRUGS (1)
  1. NEXAVAR [Suspect]
     Indication: EPENDYMOMA
     Dosage: UNK
     Route: 048
     Dates: start: 201005, end: 201104

REACTIONS (7)
  - Demyelinating polyneuropathy [Recovering/Resolving]
  - Skin exfoliation [Recovered/Resolved]
  - Aphthous stomatitis [Recovered/Resolved]
  - Paraesthesia [Recovered/Resolved]
  - Headache [Recovered/Resolved]
  - Dysphonia [Recovered/Resolved]
  - Gait disturbance [Recovering/Resolving]
